FAERS Safety Report 12208500 (Version 1)
Quarter: 2016Q1

REPORT INFORMATION
  Report Type: Spontaneous
  Country: FR (occurrence: FR)
  Receive Date: 20160324
  Receipt Date: 20160324
  Transmission Date: 20160526
  Serious: Yes (Hospitalization, Other)
  Sender: FDA-Public Use
  Company Number: FR-BRISTOL-MYERS SQUIBB COMPANY-BMS-2016-018493

PATIENT
  Age: 81 Year
  Sex: Female

DRUGS (4)
  1. COUMADINE [Suspect]
     Active Substance: WARFARIN SODIUM
     Indication: ATRIAL FIBRILLATION
     Dosage: 3 MG, QD
     Route: 048
     Dates: start: 201412
  2. BISOPROLOL EG [Suspect]
     Active Substance: BISOPROLOL
     Indication: CARDIAC FAILURE
     Dosage: 1.25 MG, QD
     Route: 048
     Dates: start: 201411
  3. MIANSERINE EG [Suspect]
     Active Substance: MIANSERIN HYDROCHLORIDE
     Indication: DEPRESSION
     Dosage: 1.25 MG, QD
     Route: 048
     Dates: start: 20151203, end: 20160216
  4. INEXIUM                            /01479302/ [Suspect]
     Active Substance: ESOMEPRAZOLE MAGNESIUM
     Indication: DYSLIPIDAEMIA
     Dosage: 20 MG, QD
     Route: 048
     Dates: start: 201411

REACTIONS (8)
  - Transaminases increased [Unknown]
  - Off label use [Unknown]
  - Pyrexia [Unknown]
  - Agranulocytosis [Not Recovered/Not Resolved]
  - Abdominal pain [Unknown]
  - General physical condition abnormal [Unknown]
  - Acute kidney injury [Unknown]
  - Gamma-glutamyltransferase increased [Unknown]

NARRATIVE: CASE EVENT DATE: 20160215
